FAERS Safety Report 10003649 (Version 2)
Quarter: 2014Q2

REPORT INFORMATION
  Report Type: Spontaneous
  Country: GB (occurrence: GB)
  Receive Date: 20140312
  Receipt Date: 20140522
  Transmission Date: 20141212
  Serious: Yes (Other)
  Sender: FDA-Public Use
  Company Number: PHFR2014GB002079

PATIENT
  Age: 19 Year
  Sex: Male

DRUGS (5)
  1. CLOZARIL [Suspect]
     Indication: SCHIZOPHRENIA
     Dosage: UNK
     Route: 048
     Dates: start: 20140227
  2. CLOZARIL [Suspect]
     Dosage: DOSE REDUCE
     Route: 048
  3. AMISULPRIDE [Suspect]
     Indication: PSYCHOTIC DISORDER
     Dosage: 400 MG, DAILY
     Route: 048
     Dates: start: 2013, end: 201403
  4. LORAZEPAM [Concomitant]
     Dosage: 1 MG, PRN (4MG MAX IN 24 HRS)
  5. DEPAKOTE [Concomitant]
     Dosage: 500 MG, TID

REACTIONS (3)
  - Atrial septal defect [Recovered/Resolved]
  - Bundle branch block right [Recovered/Resolved]
  - Tachycardia [Recovered/Resolved]
